FAERS Safety Report 6824541-2 (Version None)
Quarter: 2010Q3

REPORT INFORMATION
  Report Type: 
  Country: None (occurrence: None)
  Receive Date: 20100708
  Receipt Date: 20070120
  Transmission Date: 20110219
  Serious: Yes (Other)
  Sender: FDA-Public Use
  Company Number: US-PFIZER INC-2006134524

PATIENT
  Sex: Female
  Weight: 65.8 kg

DRUGS (2)
  1. CHANTIX [Suspect]
     Indication: SMOKING CESSATION THERAPY
     Route: 048
     Dates: start: 20060901, end: 20061023
  2. MULTI-VITAMINS [Concomitant]

REACTIONS (2)
  - PAROSMIA [None]
  - WEIGHT INCREASED [None]
